FAERS Safety Report 6385616-8 (Version None)
Quarter: 2009Q4

REPORT INFORMATION
  Report Type: 
  Country: None (occurrence: None)
  Receive Date: 20091002
  Receipt Date: 20081021
  Transmission Date: 20100525
  Serious: No
  Sender: FDA-Public Use
  Company Number: US-ASTRAZENECA-2008UW23462

PATIENT
  Age: 66 Year
  Sex: Female

DRUGS (4)
  1. ARIMIDEX [Suspect]
     Indication: BREAST CANCER
     Dosage: 1 MG
     Route: 048
     Dates: start: 20060101
  2. SYNTHROID [Concomitant]
  3. GENERIC NORVASC [Concomitant]
  4. GENERIC CELEXA [Concomitant]

REACTIONS (4)
  - EPISTAXIS [None]
  - HIGH DENSITY LIPOPROTEIN INCREASED [None]
  - LOW DENSITY LIPOPROTEIN ABNORMAL [None]
  - VERTIGO [None]
